FAERS Safety Report 7309720-2 (Version None)
Quarter: 2011Q1

REPORT INFORMATION
  Report Type: 
  Country: None (occurrence: None)
  Receive Date: 20110224
  Receipt Date: 20110215
  Transmission Date: 20110831
  Serious: Yes (Hospitalization, Other)
  Sender: FDA-Public Use
  Company Number: 2005BI022336

PATIENT
  Age: 50 Year
  Sex: Female

DRUGS (2)
  1. AVONEX [Suspect]
     Route: 030
     Dates: end: 20070301
  2. AVONEX [Suspect]
     Indication: MULTIPLE SCLEROSIS
     Route: 030
     Dates: start: 20041118, end: 20051001

REACTIONS (4)
  - MYOCARDIAL INFARCTION [None]
  - MULTIPLE SCLEROSIS [None]
  - ARRHYTHMIA [None]
  - INFLUENZA LIKE ILLNESS [None]
